FAERS Safety Report 9553219 (Version 1)
Quarter: 2013Q3

REPORT INFORMATION
  Report Type: Spontaneous
  Country: US (occurrence: None)
  Receive Date: 20130724
  Receipt Date: 20130724
  Transmission Date: 20140515
  Serious: Yes (Hospitalization)
  Sender: FDA-Public Use
  Company Number: PHEH2012US018619

PATIENT
  Age: 52 Year
  Sex: Male

DRUGS (10)
  1. GLEEVEC [Suspect]
     Route: 048
     Dates: start: 20110212
  2. ONDASETRON (ONDANSETRON) [Concomitant]
  3. FENTANYL (FENTANYL) [Concomitant]
  4. PREDNISONE (PREDNISONE) [Concomitant]
  5. METOPROLOL (METOPROLOL) [Concomitant]
  6. LOREMIX (LORATADINE) [Concomitant]
  7. PREDNISOLONE (PREDNISOLONE) [Concomitant]
  8. AMOXICILINA (AMOXICILLIN) [Concomitant]
  9. HYDROCODONE W/APAP (HYDROCODONE, PARACETAMOL) [Concomitant]
  10. HUMALOG (INSULIN LISPRO) [Concomitant]

REACTIONS (1)
  - Pharyngeal oedema [None]
